FAERS Safety Report 25099422 (Version 1)
Quarter: 2025Q1

REPORT INFORMATION
  Report Type: Spontaneous
  Country: US (occurrence: None)
  Receive Date: 20250319
  Receipt Date: 20250319
  Transmission Date: 20250409
  Serious: No
  Sender: FDA-CTU
  Company Number: None

PATIENT
  Age: 37 Year
  Sex: Female
  Weight: 47.7 kg

DRUGS (2)
  1. VENLAFAXINE HCL [Suspect]
     Active Substance: VENLAFAXINE HYDROCHLORIDE
     Indication: Depression
     Dosage: 1 CAPSULE AT BEDTIME ORAL
     Route: 048
     Dates: start: 20250319
  2. VENLAFAXINE HCL [Suspect]
     Active Substance: VENLAFAXINE HYDROCHLORIDE
     Indication: Anxiety

REACTIONS (11)
  - Sleep disorder [None]
  - Abnormal dreams [None]
  - Pupillary disorder [None]
  - Feeling abnormal [None]
  - Disturbance in attention [None]
  - Feeling abnormal [None]
  - Nausea [None]
  - Dizziness [None]
  - Bruxism [None]
  - Jaw disorder [None]
  - Staring [None]

NARRATIVE: CASE EVENT DATE: 20250319
